FAERS Safety Report 6998744-0 (Version None)
Quarter: 2010Q3

REPORT INFORMATION
  Report Type: 
  Country: None (occurrence: None)
  Receive Date: 20100920
  Receipt Date: 20091221
  Transmission Date: 20110219
  Serious: No
  Sender: FDA-Public Use
  Company Number: US-ASTRAZENECA-2009SE32985

PATIENT
  Age: 80 Year
  Sex: Male
  Weight: 87.5 kg

DRUGS (9)
  1. SEROQUEL XR [Suspect]
     Indication: SCHIZOPHRENIA
     Route: 048
     Dates: start: 20091130
  2. SEROQUEL XR [Suspect]
     Dosage: EVERY OTHER DAY.
     Route: 048
  3. CRESTOR [Concomitant]
     Route: 048
  4. PLAVIX [Concomitant]
  5. ASPIRIN [Concomitant]
  6. VITAMIN B-12 [Concomitant]
  7. FOLIC ACID [Concomitant]
  8. LOVAZA [Concomitant]
  9. MULTI-VITAMIN [Concomitant]

REACTIONS (3)
  - PROTRUSION TONGUE [None]
  - PRURITUS [None]
  - SOMNOLENCE [None]
